FAERS Safety Report 22647612 (Version 1)
Quarter: 2023Q2

REPORT INFORMATION
  Report Type: Report from Study
  Country: US (occurrence: US)
  Receive Date: 20230628
  Receipt Date: 20230628
  Transmission Date: 20230721
  Serious: Yes (Hospitalization, Other)
  Sender: FDA-Public Use
  Company Number: US-ABBVIE-5305937

PATIENT
  Age: 61 Year
  Sex: Male
  Weight: 113.39 kg

DRUGS (2)
  1. HUMIRA [Suspect]
     Active Substance: ADALIMUMAB
     Indication: Hidradenitis
     Dosage: FORM STRENGTH: 40 MILLIGRAM
     Route: 058
     Dates: start: 2021, end: 202306
  2. HUMIRA [Suspect]
     Active Substance: ADALIMUMAB
     Indication: Hidradenitis
     Route: 058
     Dates: start: 20230623

REACTIONS (3)
  - Hyperbaric oxygen therapy [Unknown]
  - Toe amputation [Recovering/Resolving]
  - Skin graft [Unknown]

NARRATIVE: CASE EVENT DATE: 20230404
